FAERS Safety Report 7235648-2 (Version None)
Quarter: 2011Q1

REPORT INFORMATION
  Report Type: 
  Country: None (occurrence: None)
  Receive Date: 20110120
  Receipt Date: 20101112
  Transmission Date: 20110831
  Serious: No
  Sender: FDA-Public Use
  Company Number: US-BAYER-2010-004920

PATIENT
  Sex: Female
  Weight: 71.655 kg

DRUGS (5)
  1. JANUMET [Concomitant]
  2. LISINOPRIL [Concomitant]
  3. LORTAB [Concomitant]
  4. ALEVE (CAPLET) [Suspect]
     Indication: BACK PAIN
     Dosage: COUNT BOTTLE 20S
     Route: 048
     Dates: start: 20101111
  5. GABAPENTIN [Concomitant]

REACTIONS (1)
  - NO ADVERSE EVENT [None]
